FAERS Safety Report 5649215-5 (Version None)
Quarter: 2008Q1

REPORT INFORMATION
  Report Type: 
  Country: None (occurrence: None)
  Receive Date: 20080304
  Receipt Date: 20071204
  Transmission Date: 20080703
  Serious: No
  Sender: FDA-Public Use
  Company Number: US-BAYER-200715770NA

PATIENT
  Age: 53 Year
  Sex: Female
  Weight: 50 kg

DRUGS (2)
  1. MAGNEVIST [Suspect]
     Indication: NUCLEAR MAGNETIC RESONANCE IMAGING
     Dosage: UNIT DOSE: 20 ML
     Route: 042
     Dates: start: 20071128, end: 20071128
  2. ACTONEL [Concomitant]

REACTIONS (3)
  - FEELING HOT [None]
  - URTICARIA [None]
  - VOMITING [None]
